FAERS Safety Report 21520094 (Version 1)
Quarter: 2022Q4

REPORT INFORMATION
  Report Type: Spontaneous
  Country: US (occurrence: US)
  Receive Date: 20221028
  Receipt Date: 20221028
  Transmission Date: 20230112
  Serious: Yes (Hospitalization, Other)
  Sender: FDA-Public Use
  Company Number: US-PFIZER INC-202201236861

PATIENT
  Age: 27 Year
  Sex: Female

DRUGS (2)
  1. BUPRENORPHINE [Suspect]
     Active Substance: BUPRENORPHINE
     Dosage: UNK
  2. FENTANYL [Suspect]
     Active Substance: FENTANYL
     Dosage: UNK

REACTIONS (4)
  - Maternal exposure during pregnancy [Unknown]
  - Drug withdrawal syndrome [Recovering/Resolving]
  - Delirium [Recovering/Resolving]
  - Agitation [Recovering/Resolving]
